FAERS Safety Report 10748988 (Version 2)
Quarter: 2015Q2

REPORT INFORMATION
  Report Type: Spontaneous
  Country: US (occurrence: None)
  Receive Date: 20150120
  Receipt Date: 20150420
  Transmission Date: 20150821
  Serious: No
  Sender: FDA-Public Use
  Company Number: AEGR000836

PATIENT
  Age: 71 Year
  Sex: Female
  Weight: 103.4 kg

DRUGS (11)
  1. CALCIUM D (CALCIUM CARBONATE, COLECALCIFEROL) [Concomitant]
  2. PRAVACHOL (PRAVASTATIN SODIUM) [Concomitant]
  3. PROPANOLOL (PROPANOLOL HYDROCHLORIDE) [Concomitant]
  4. MECLIZINE [Concomitant]
     Active Substance: MECLIZINE\MECLIZINE HYDROCHLORIDE
  5. EXEMESTANE (EXEMESTANE) TABLET [Concomitant]
     Active Substance: EXEMESTANE
  6. OMEGA 3 6 9 (OMEGA 9 FATTY ACIDS, OMEA-3 FATTY ACIDS, OMEGA-6 FATTY ACIDS) [Concomitant]
  7. ASPIRIN (E.C) (ACETYLSALICYLIC ACID) [Concomitant]
  8. VITAMIN E (TOCOPHERYL ACETATE) [Concomitant]
  9. JUXTAPID [Suspect]
     Active Substance: LOMITAPIDE MESYLATE
     Indication: TYPE IIA HYPERLIPIDAEMIA
     Route: 048
     Dates: start: 20131003
  10. SYNTHROID [Concomitant]
     Active Substance: LEVOTHYROXINE SODIUM
  11. LISINOPRIL/HCTZ (HYDROCHLOROTHIAZIDE, LISINOPRIL) [Concomitant]

REACTIONS (1)
  - Weight decreased [None]

NARRATIVE: CASE EVENT DATE: 2014
